FAERS Safety Report 5130899-5 (Version None)
Quarter: 2006Q4

REPORT INFORMATION
  Report Type: 
  Country: None (occurrence: None)
  Receive Date: 20061019
  Receipt Date: 20061016
  Transmission Date: 20070319
  Serious: Yes (Death)
  Sender: FDA-Public Use
  Company Number: US-NOVOPROD-257752

PATIENT

DRUGS (1)
  1. NOVOSEVEN [Suspect]
     Indication: CEREBRAL HAEMORRHAGE
     Dosage: 80 NG/KG

REACTIONS (1)
  - MYOCARDIAL INFARCTION [None]
